FAERS Safety Report 16070131 (Version 1)
Quarter: 2019Q1

REPORT INFORMATION
  Report Type: Spontaneous
  Country: FR (occurrence: FR)
  Receive Date: 20190314
  Receipt Date: 20190314
  Transmission Date: 20190418
  Serious: Yes (Hospitalization)
  Sender: FDA-Public Use
  Company Number: FR-ACCORD-112260

PATIENT
  Age: 50 Year
  Sex: Male
  Weight: 96 kg

DRUGS (10)
  1. QUETIAPINE. [Suspect]
     Active Substance: QUETIAPINE
     Indication: SCHIZOPHRENIA
     Route: 048
  2. PREVISCAN [Concomitant]
     Dosage: STRENGTH: 20 MG, SCORED TABLET
  3. LOXAPAC [Suspect]
     Active Substance: LOXAPINE
     Indication: CONDITION AGGRAVATED
     Route: 048
     Dates: start: 201808
  4. ENTRESTO [Concomitant]
     Active Substance: SACUBITRIL\VALSARTAN
     Dosage: STRENGTH: 97 MG/ 103 MG
  5. LACTULOSE. [Concomitant]
     Active Substance: LACTULOSE
  6. TRANSIPEG [MACROGOL] [Concomitant]
     Active Substance: POLYETHYLENE GLYCOLS
  7. CRESTOR [Concomitant]
     Active Substance: ROSUVASTATIN CALCIUM
     Dosage: STRENGTH: 10 MG
  8. BISOPROLOL [Concomitant]
     Active Substance: BISOPROLOL
  9. DIAZEPAM. [Suspect]
     Active Substance: DIAZEPAM
     Indication: CONDITION AGGRAVATED
     Route: 048
     Dates: start: 201808
  10. LASILIX [Concomitant]
     Active Substance: FUROSEMIDE
     Dosage: STRENGTH: 40 MG,SCORED TABLET

REACTIONS (1)
  - Ischaemic stroke [Recovered/Resolved]

NARRATIVE: CASE EVENT DATE: 20180821
